FAERS Safety Report 9371918 (Version 3)
Quarter: 2013Q3

REPORT INFORMATION
  Report Type: Spontaneous
  Country: DE (occurrence: CH)
  Receive Date: 20130627
  Receipt Date: 20130822
  Transmission Date: 20140515
  Serious: Yes (Hospitalization, Other)
  Sender: FDA-Public Use
  Company Number: CH-FRI-1000046251

PATIENT
  Age: 73 Year
  Sex: Male
  Weight: 104 kg

DRUGS (6)
  1. ROFLUMILAST [Suspect]
     Indication: CHRONIC OBSTRUCTIVE PULMONARY DISEASE
     Dosage: 0.5 DF
     Dates: start: 20130404, end: 20130418
  2. METFIN [Concomitant]
  3. ASPIRIN CARDIO [Concomitant]
  4. EXFORGE [Concomitant]
  5. NEBILET [Concomitant]
  6. SIMVASTATIN [Concomitant]

REACTIONS (4)
  - Diarrhoea haemorrhagic [Recovered/Resolved]
  - Melaena [Recovered/Resolved]
  - Weight decreased [Recovered/Resolved]
  - Off label use [Unknown]
